FAERS Safety Report 7033763-X (Version None)
Quarter: 2010Q4

REPORT INFORMATION
  Report Type: 
  Country: None (occurrence: None)
  Receive Date: 20101007
  Receipt Date: 20100921
  Transmission Date: 20110411
  Serious: Yes (Other)
  Sender: FDA-Public Use
  Company Number: PHHY2010BR65414

PATIENT
  Age: 62 Year
  Sex: Female
  Weight: 79 kg

DRUGS (6)
  1. ALISKIREN [Suspect]
     Dosage: 150 MG, UNK
  2. LOSARTAN [Concomitant]
     Dosage: 50 MG, UNK
  3. HYDROCHLOROTHIAZIDE [Concomitant]
     Dosage: 12.5 MG, UNK
  4. SIMVASTATIN [Concomitant]
     Dosage: UNK
  5. SIMVASTATIN [Concomitant]
     Dosage: 40 MG, UNK
  6. ASPIRIN [Concomitant]
     Dosage: 100 MG, UNK

REACTIONS (9)
  - BLOOD PRESSURE INADEQUATELY CONTROLLED [None]
  - BLOOD PRESSURE INCREASED [None]
  - CARDIAC VENTRICULAR DISORDER [None]
  - ELECTROCARDIOGRAM REPOLARISATION ABNORMALITY [None]
  - FATIGUE [None]
  - HYPERGLYCAEMIA [None]
  - OEDEMA PERIPHERAL [None]
  - RETINOPATHY HYPERTENSIVE [None]
  - WEIGHT INCREASED [None]
